FAERS Safety Report 4717758-4 (Version None)
Quarter: 2005Q3

REPORT INFORMATION
  Report Type: 
  Country: None (occurrence: None)
  Receive Date: 20050715
  Receipt Date: 20050408
  Transmission Date: 20060218
  Serious: Yes (Other)
  Sender: FDA-Public Use
  Company Number: 2005-00769

PATIENT
  Age: 59 Year
  Sex: Male

DRUGS (5)
  1. INTEGRILIN [Suspect]
     Indication: CHEST PAIN
     Dates: start: 20050407, end: 20050408
  2. TRICOR (FENIFIBRATE) [Concomitant]
  3. ACETYLSALICYLIC ACID (ACTEYLSALICYLIC ACID) [Concomitant]
  4. HEPARIN [Concomitant]
  5. LOPRESSOR [Concomitant]

REACTIONS (1)
  - THROMBOCYTOPENIA [None]
